FAERS Safety Report 12691817 (Version 1)
Quarter: 2016Q3

REPORT INFORMATION
  Report Type: Spontaneous
  Country: TR (occurrence: TR)
  Receive Date: 20160826
  Receipt Date: 20160826
  Transmission Date: 20161109
  Serious: Yes (Hospitalization)
  Sender: FDA-Public Use
  Company Number: TR-ASTRAZENECA-2016SE90351

PATIENT
  Age: 75 Year
  Sex: Male

DRUGS (6)
  1. AMLODIS [Concomitant]
     Indication: HYPERTENSION
     Route: 048
     Dates: start: 20160814
  2. DELIX [Concomitant]
     Active Substance: RAMIPRIL
     Indication: HYPERTENSION
     Route: 048
     Dates: start: 20160814
  3. CORDARONE [Concomitant]
     Active Substance: AMIODARONE HYDROCHLORIDE
     Indication: TACHYCARDIA
     Dosage: 150MG/3 ML
     Route: 042
     Dates: start: 20160814, end: 20160815
  4. CONCOR [Concomitant]
     Active Substance: BISOPROLOL FUMARATE
     Indication: ANGINA PECTORIS
     Route: 048
     Dates: start: 20160814
  5. ASPIRIN. [Concomitant]
     Active Substance: ASPIRIN
     Indication: THROMBOSIS
     Route: 048
     Dates: start: 20160814
  6. BRILINTA [Suspect]
     Active Substance: TICAGRELOR
     Indication: MYOCARDIAL INFARCTION
     Route: 048
     Dates: start: 20160814, end: 20160816

REACTIONS (1)
  - Atrioventricular block [Recovered/Resolved]

NARRATIVE: CASE EVENT DATE: 20160815
